FAERS Safety Report 4440747-4 (Version None)
Quarter: 2004Q3

REPORT INFORMATION
  Report Type: 
  Country: None (occurrence: None)
  Receive Date: 20040728
  Receipt Date: 20040331
  Transmission Date: 20050211
  Serious: No
  Sender: FDA-Public Use
  Company Number: USA031152343

PATIENT
  Age: 7 Year
  Sex: Male
  Weight: 23 kg

DRUGS (3)
  1. STRATTERA [Suspect]
     Indication: ATTENTION DEFICIT/HYPERACTIVITY DISORDER
     Dosage: 25 MG DAY
     Dates: start: 20030917, end: 20031001
  2. PAXIL [Concomitant]
  3. TENEX (GUAFACINE HYDROCHLORIDE) [Concomitant]

REACTIONS (2)
  - TIC [None]
  - TOURETTE'S DISORDER [None]
